FAERS Safety Report 7554739-X (Version None)
Quarter: 2011Q2

REPORT INFORMATION
  Report Type: 
  Country: None (occurrence: None)
  Receive Date: 20110610
  Receipt Date: 20110531
  Transmission Date: 20111010
  Serious: Yes (Other)
  Sender: FDA-Public Use
  Company Number: JP-2011-10807

PATIENT
  Age: 67 Year
  Sex: Male
  Weight: 61 kg

DRUGS (16)
  1. VANCOMYCIN [Concomitant]
  2. ASPARA POTASSIUM (POTASSIUM L-ASPARTATE) [Concomitant]
  3. FUROSEMIDE [Concomitant]
  4. ISOSORBIDE DINITRATE [Concomitant]
  5. WARFARIN (WARFARIN POTASSIUM) [Concomitant]
  6. LANSOPRAZOLE [Concomitant]
  7. MYSLEE (ZOLPIDEM TARTRATE) [Concomitant]
  8. NESP (DARBEPOETIN) [Concomitant]
  9. SAMSCA [Suspect]
     Dosage: 7.5 MG MILLIGRAM(S), QD, ORAL ; 15 MG MILLIGRAM(S), QD, ORAL
     Route: 048
     Dates: start: 20110509, end: 20110518
  10. SAMSCA [Suspect]
     Dosage: 7.5 MG MILLIGRAM(S), QD, ORAL ; 15 MG MILLIGRAM(S), QD, ORAL
     Route: 048
     Dates: start: 20110429, end: 20110508
  11. MEROPENEM (MEROPENEM HYDRATE) [Concomitant]
  12. ASPIRIN [Concomitant]
  13. FOLIC ACID [Concomitant]
  14. MUCOTRON (CARBOCISTEINE) [Concomitant]
  15. AMIODARONE HCL [Concomitant]
  16. THYRADIN S (LEVOTHYROXINE SODIUM HYDRATE) [Concomitant]

REACTIONS (1)
  - TOXIC SKIN ERUPTION [None]
